FAERS Safety Report 7518027-X (Version None)
Quarter: 2011Q2

REPORT INFORMATION
  Report Type: 
  Country: None (occurrence: None)
  Receive Date: 20110523
  Receipt Date: 20110509
  Transmission Date: 20111010
  Serious: Yes (Hospitalization)
  Sender: FDA-Public Use
  Company Number: 2011MA005599

PATIENT
  Age: 39 Year
  Sex: Female

DRUGS (6)
  1. AMANTADINE HCL [Suspect]
     Dosage: 100 MG, QD
  2. CEPAXONE [Concomitant]
  3. TOPIRAMATE [Concomitant]
  4. BUPROPION HCL [Concomitant]
  5. FLUOXETINE HCL [Concomitant]
  6. CLONAZEPAM [Concomitant]

REACTIONS (4)
  - MALNUTRITION [None]
  - CORNEAL DISORDER [None]
  - BLINDNESS [None]
  - CORNEAL OEDEMA [None]
